FAERS Safety Report 6296413-6 (Version None)
Quarter: 2009Q3

REPORT INFORMATION
  Report Type: 
  Country: None (occurrence: None)
  Receive Date: 20090804
  Receipt Date: 20090729
  Transmission Date: 20100115
  Serious: Yes (Other)
  Sender: FDA-Public Use
  Company Number: US-BAYER-200911978BCC

PATIENT
  Age: 66 Year
  Sex: Male

DRUGS (1)
  1. ASPIRIN [Suspect]
     Indication: CORONARY ARTERY DISEASE
     Route: 048

REACTIONS (2)
  - GASTROINTESTINAL ULCER [None]
  - MELAENA [None]
